FAERS Safety Report 11101359 (Version 1)
Quarter: 2015Q2

REPORT INFORMATION
  Report Type: Spontaneous
  Country: US (occurrence: US)
  Receive Date: 20150508
  Receipt Date: 20150508
  Transmission Date: 20150821
  Serious: Yes (Other)
  Sender: FDA-Public Use
  Company Number: US-OTSUKA PHARMACEUTICAL CO.-2015_000472

PATIENT
  Sex: Female

DRUGS (2)
  1. ABILIFY [Suspect]
     Active Substance: ARIPIPRAZOLE
     Indication: POST-TRAUMATIC STRESS DISORDER
     Dosage: UNK
     Route: 065
     Dates: start: 2002
  2. ABILIFY [Suspect]
     Active Substance: ARIPIPRAZOLE
     Indication: ANGER
     Dosage: 30 MG, UNK
     Route: 065

REACTIONS (4)
  - Breast cancer female [None]
  - Breast cancer [Unknown]
  - Off label use [Unknown]
  - Dyskinesia [Recovered/Resolved]
